FAERS Safety Report 7645632-2 (Version None)
Quarter: 2011Q3

REPORT INFORMATION
  Report Type: 
  Country: None (occurrence: None)
  Receive Date: 20110729
  Receipt Date: 20110720
  Transmission Date: 20111222
  Serious: Yes (Other)
  Sender: FDA-Public Use
  Company Number: PHHY2011CH65484

PATIENT
  Age: 42 Year
  Sex: Male
  Weight: 80 kg

DRUGS (1)
  1. AMOXICILLIN AND CLAVULANATE POTASSIUM [Suspect]
     Indication: OPEN WOUND
     Dosage: UNK UKN, UNK
     Route: 048
     Dates: start: 20110402, end: 20110411

REACTIONS (4)
  - JAUNDICE [None]
  - LIVER DISORDER [None]
  - CHOLESTATIC LIVER INJURY [None]
  - PRURITUS [None]
